FAERS Safety Report 7959882-9 (Version None)
Quarter: 2011Q4

REPORT INFORMATION
  Report Type: 
  Country: None (occurrence: None)
  Receive Date: 20111206
  Receipt Date: 20111128
  Transmission Date: 20120403
  Serious: Yes (Other)
  Sender: FDA-Public Use
  Company Number: PHHY2011IT104854

PATIENT
  Age: 67 Year
  Sex: Male

DRUGS (1)
  1. CHLORPROMAZINE [Suspect]

REACTIONS (3)
  - PHOTODERMATOSIS [None]
  - ACCIDENTAL EXPOSURE [None]
  - ECZEMA [None]
